FAERS Safety Report 25591478 (Version 1)
Quarter: 2025Q3

REPORT INFORMATION
  Report Type: Report from Study
  Country: US (occurrence: US)
  Receive Date: 20250722
  Receipt Date: 20250722
  Transmission Date: 20251021
  Serious: Yes (Hospitalization)
  Sender: EISAI
  Company Number: US-Eisai-EC-2025-193552

PATIENT
  Age: 54 Year
  Sex: Male

DRUGS (6)
  1. LENVIMA [Suspect]
     Active Substance: LENVATINIB
     Indication: Renal cancer
     Dates: start: 20241110, end: 2025
  2. LENVIMA [Suspect]
     Active Substance: LENVATINIB
     Dates: start: 2025, end: 202507
  3. LENVIMA [Suspect]
     Active Substance: LENVATINIB
     Dates: start: 202507
  4. EVEROLIMUS [Concomitant]
     Active Substance: EVEROLIMUS
  5. LOSARTAN [Concomitant]
     Active Substance: LOSARTAN
  6. IMODIUM [Concomitant]
     Active Substance: LOPERAMIDE HYDROCHLORIDE

REACTIONS (3)
  - Dehydration [Recovering/Resolving]
  - Nausea [Recovering/Resolving]
  - Vomiting [Recovering/Resolving]

NARRATIVE: CASE EVENT DATE: 20250101
